FAERS Safety Report 13055270 (Version 1)
Quarter: 2016Q4

REPORT INFORMATION
  Report Type: Spontaneous
  Country: US (occurrence: US)
  Receive Date: 20161222
  Receipt Date: 20161222
  Transmission Date: 20170207
  Serious: No
  Sender: FDA-Public Use
  Company Number: US-GLAXOSMITHKLINE-US2016GSK189336

PATIENT
  Sex: Female
  Weight: 69 kg

DRUGS (12)
  1. VITAMIN D3 [Concomitant]
     Active Substance: CHOLECALCIFEROL
  2. CLONAZEPAM. [Concomitant]
     Active Substance: CLONAZEPAM
  3. PREDNISONE. [Concomitant]
     Active Substance: PREDNISONE
  4. LIPITOR [Concomitant]
     Active Substance: ATORVASTATIN CALCIUM
  5. CIPRO [Concomitant]
     Active Substance: CIPROFLOXACIN HYDROCHLORIDE
  6. RAPAMUNE [Suspect]
     Active Substance: SIROLIMUS
     Indication: RENAL TRANSPLANT
     Dosage: 1 MG, QD
     Route: 048
     Dates: start: 2009
  7. ELIQUIS [Concomitant]
     Active Substance: APIXABAN
  8. FLOVENT [Suspect]
     Active Substance: FLUTICASONE PROPIONATE
     Indication: ASTHMA
     Dosage: 1 PUFF(S), QD
  9. METOPROLOL. [Concomitant]
     Active Substance: METOPROLOL
  10. PRILOSEC [Suspect]
     Active Substance: OMEPRAZOLE MAGNESIUM
     Indication: GASTROOESOPHAGEAL REFLUX DISEASE
  11. IRON [Concomitant]
     Active Substance: IRON
  12. ACICLOVIR [Concomitant]
     Active Substance: ACYCLOVIR

REACTIONS (8)
  - Gastrooesophageal reflux disease [Unknown]
  - Asthma [Not Recovered/Not Resolved]
  - Wheezing [Not Recovered/Not Resolved]
  - Oral candidiasis [Recovered/Resolved]
  - Musculoskeletal discomfort [Unknown]
  - Decreased appetite [Not Recovered/Not Resolved]
  - Dysphonia [Not Recovered/Not Resolved]
  - Tongue ulceration [Unknown]
